FAERS Safety Report 7859925-7 (Version None)
Quarter: 2011Q4

REPORT INFORMATION
  Report Type: 
  Country: None (occurrence: None)
  Receive Date: 20111026
  Receipt Date: 20111026
  Transmission Date: 20120403
  Serious: Yes (Life-Threatening)
  Sender: FDA-Public Use
  Company Number: None

PATIENT
  Sex: Female
  Weight: 80.7403 kg

DRUGS (1)
  1. AZITHROMYCIN [Suspect]
     Dosage: 1 DOSE BY MOUTH
     Route: 048

REACTIONS (2)
  - THROAT TIGHTNESS [None]
  - DYSPNOEA [None]
